FAERS Safety Report 6791347-2 (Version None)
Quarter: 2010Q2

REPORT INFORMATION
  Report Type: 
  Country: None (occurrence: None)
  Receive Date: 20100624
  Receipt Date: 20100621
  Transmission Date: 20101027
  Serious: Yes (Other)
  Sender: FDA-Public Use
  Company Number: GB-B.I. PHARMACEUTICALS,INC./RIDGEFIELD-2010-DE-03373GD

PATIENT
  Age: 4 Year
  Sex: Male
  Weight: 15 kg

DRUGS (6)
  1. CLONIDINE [Suspect]
     Indication: EPIDURAL ANAESTHESIA
     Dosage: 15 MCG
     Route: 008
  2. PARACETAMOL [Suspect]
     Dosage: 15 MG/KG
     Route: 042
  3. PROPOFOL [Suspect]
     Indication: INDUCTION OF ANAESTHESIA
     Dosage: 4 MG/KG
  4. ATRACURIUM [Suspect]
     Indication: ENDOTRACHEAL INTUBATION
     Dosage: 0.5 MG/KG
  5. LEVOBUPIVACAINE [Suspect]
     Indication: EPIDURAL ANAESTHESIA
     Dosage: 15 ML OF 0.25%
     Route: 008
  6. SEVOFLURANE [Suspect]
     Indication: MAINTENANCE OF ANAESTHESIA
     Route: 055

REACTIONS (1)
  - PENILE VASCULAR DISORDER [None]
